FAERS Safety Report 5344885-3 (Version None)
Quarter: 2007Q2

REPORT INFORMATION
  Report Type: 
  Country: None (occurrence: None)
  Receive Date: 20070416
  Receipt Date: 20070118
  Transmission Date: 20071010
  Serious: No
  Sender: FDA-Public Use
  Company Number: 2007SP000220

PATIENT
  Age: 51 Year
  Sex: Female
  Weight: 90.7194 kg

DRUGS (4)
  1. LUNESTA [Suspect]
     Indication: INSOMNIA
     Dosage: 1.5 MG;HS;ORAL
     Route: 048
     Dates: start: 20060101, end: 20061230
  2. LUNESTA [Suspect]
     Indication: INSOMNIA
     Dosage: 1.5 MG;HS;ORAL
     Route: 048
     Dates: start: 20070105
  3. AMBIEN [Suspect]
     Indication: INSOMNIA
     Dosage: 12.5 MG;HS;ORAL
     Route: 048
     Dates: start: 20061231, end: 20070104
  4. OXYCODONE HCL [Concomitant]

REACTIONS (4)
  - HEADACHE [None]
  - INSOMNIA [None]
  - NIGHTMARE [None]
  - SOMNOLENCE [None]
